FAERS Safety Report 5504753-0 (Version None)
Quarter: 2007Q4

REPORT INFORMATION
  Report Type: 
  Country: None (occurrence: None)
  Receive Date: 20071102
  Receipt Date: 20071029
  Transmission Date: 20080405
  Serious: Yes (Other)
  Sender: FDA-Public Use
  Company Number: US-ASTRAZENECA-2007UW25028

PATIENT
  Age: 83 Year
  Sex: Female

DRUGS (3)
  1. ARIMIDEX [Suspect]
     Indication: BREAST CANCER
     Route: 048
     Dates: start: 20071001
  2. ARIMIDEX [Suspect]
     Route: 048
     Dates: start: 20071001
  3. NEURONTIN [Concomitant]

REACTIONS (2)
  - CONDITION AGGRAVATED [None]
  - HEADACHE [None]
